FAERS Safety Report 9365997 (Version 1)
Quarter: 2013Q2

REPORT INFORMATION
  Report Type: Spontaneous
  Country: US (occurrence: US)
  Receive Date: 20130625
  Receipt Date: 20130625
  Transmission Date: 20140414
  Serious: No
  Sender: FDA-Public Use
  Company Number: US-PFIZER INC-2013187554

PATIENT
  Age: 49 Year
  Sex: Female

DRUGS (6)
  1. VENLAFAXINE HCL [Suspect]
     Indication: PANIC ATTACK
     Dosage: 150 MG, 1X/DAY
     Dates: start: 2013, end: 2013
  2. VENLAFAXINE HCL [Suspect]
     Indication: ANXIETY
  3. KLONOPIN [Suspect]
     Indication: DYSPNOEA
     Dosage: UNK (HALF OF 0.2 MG), AS NEEDED
  4. KLONOPIN [Suspect]
     Indication: ANXIETY
  5. IRON [Concomitant]
     Indication: BLOOD IRON DECREASED
     Dosage: UNK
  6. CALCIUM [Concomitant]
     Dosage: UNK

REACTIONS (9)
  - Drug ineffective [Unknown]
  - Somnolence [Unknown]
  - Fatigue [Unknown]
  - Nausea [Unknown]
  - Dyspnoea [Unknown]
  - Palpitations [Unknown]
  - Malaise [Unknown]
  - Food poisoning [Unknown]
  - Vitamin D decreased [Unknown]
